FAERS Safety Report 24444921 (Version 2)
Quarter: 2024Q4

REPORT INFORMATION
  Report Type: Report from Study
  Country: US (occurrence: US)
  Receive Date: 20241016
  Receipt Date: 20241017
  Transmission Date: 20250115
  Serious: No
  Sender: ROCHE
  Company Number: US-ROCHE-2860342

PATIENT
  Age: 80 Year
  Sex: Male

DRUGS (2)
  1. RITUXAN [Suspect]
     Active Substance: RITUXIMAB
     Indication: Granulomatosis with polyangiitis
     Dosage: DAY 1 TO 15 FOR 6 MONTHS?DATE OF TREATMENT: 19/DEC/2023, 04/DEC/2023, 16/JUN/2023, 01/JUN/2023, 16/D
     Route: 041
  2. RITUXAN [Suspect]
     Active Substance: RITUXIMAB
     Indication: Arteritis
     Route: 041
     Dates: end: 20190723

REACTIONS (2)
  - Off label use [Unknown]
  - No adverse event [Unknown]
